FAERS Safety Report 8668631 (Version 2)
Quarter: 2012Q4

REPORT INFORMATION
  Report Type: 
  Country: US (occurrence: US)
  Receive Date: 20120717
  Receipt Date: 20120910
  Transmission Date: 20130627
  Serious: No
  Sender: FDA-Public Use
  Company Number: US-ASTRAZENECA-2012SE46125

PATIENT
  Age: 32 Year
  Sex: Female
  Weight: 108.9 kg

DRUGS (10)
  1. SEROQUEL [Suspect]
     Indication: BIPOLAR I DISORDER
     Route: 048
  2. SEROQUEL [Suspect]
     Indication: SLEEP DISORDER
     Route: 048
  3. SEROQUEL [Suspect]
     Indication: BIPOLAR I DISORDER
     Route: 048
  4. SEROQUEL [Suspect]
     Indication: SLEEP DISORDER
     Route: 048
  5. METFORMIN [Concomitant]
     Indication: DIABETES MELLITUS
     Route: 048
  6. AMARYL [Concomitant]
     Indication: DIABETES MELLITUS
     Route: 048
  7. LANTUS [Concomitant]
     Indication: DIABETES MELLITUS
     Route: 058
  8. XANAX [Concomitant]
     Indication: ANXIETY
  9. VYBRID [Concomitant]
     Indication: DEPRESSION
  10. OTC VITAMIN [Concomitant]

REACTIONS (7)
  - Diabetes mellitus [Unknown]
  - Malaise [Unknown]
  - Withdrawal syndrome [Unknown]
  - Tooth fracture [Unknown]
  - Malaise [Unknown]
  - Drug dispensing error [Unknown]
  - Drug dose omission [Unknown]
